FAERS Safety Report 15061866 (Version 1)
Quarter: 2018Q2

REPORT INFORMATION
  Report Type: Spontaneous
  Country: US (occurrence: US)
  Receive Date: 20180625
  Receipt Date: 20180625
  Transmission Date: 20180711
  Serious: Yes (Other)
  Sender: FDA-Public Use
  Company Number: US-NOVOPROD-606744

PATIENT
  Age: 25 Year
  Sex: Female
  Weight: 83.9 kg

DRUGS (2)
  1. PLAQUENIL                          /00072602/ [Concomitant]
     Active Substance: HYDROXYCHLOROQUINE DIPHOSPHATE
     Indication: PRODUCT USED FOR UNKNOWN INDICATION
     Dosage: UNK, ONCE DAILY
     Route: 048
  2. OZEMPIC [Suspect]
     Active Substance: SEMAGLUTIDE
     Indication: POLYCYSTIC OVARIES
     Dosage: 0.25 MG, QW
     Route: 058
     Dates: start: 20180607, end: 20180607

REACTIONS (7)
  - Dizziness [Recovered/Resolved]
  - Eructation [Recovered/Resolved]
  - Vomiting [Recovered/Resolved]
  - Diarrhoea haemorrhagic [Recovered/Resolved]
  - Nausea [Recovered/Resolved]
  - Abdominal pain [Recovered/Resolved]
  - Off label use [Recovered/Resolved]

NARRATIVE: CASE EVENT DATE: 201806
